FAERS Safety Report 7629710-X (Version None)
Quarter: 2011Q3

REPORT INFORMATION
  Report Type: 
  Country: None (occurrence: None)
  Receive Date: 20110715
  Receipt Date: 20110629
  Transmission Date: 20111222
  Serious: Yes (Hospitalization)
  Sender: FDA-Public Use
  Company Number: 1000021526

PATIENT
  Age: 82 Year
  Sex: Female
  Weight: 55 kg

DRUGS (7)
  1. ZESTRIL [Suspect]
     Indication: HYPERTENSIVE HEART DISEASE
     Dosage: 20 MG (20 MG, 1 IN 1D), ORAL
     Route: 048
     Dates: start: 20110226
  2. PRAVALOTIN (PRAVASTATIN SODIUM) (TABLETS) (PRAVASTATIN) [Concomitant]
  3. ESCITALOPRAM [Suspect]
     Indication: DEPRESSION
     Dosage: 5 MG (5 MG, 1 IN 1 D), ORAL 10 MG (10 MG, 1 IN 1 D),  ORAL
     Route: 048
     Dates: start: 20110301, end: 20110303
  4. ESCITALOPRAM [Suspect]
     Indication: DEPRESSION
     Dosage: 5 MG (5 MG, 1 IN 1 D), ORAL 10 MG (10 MG, 1 IN 1 D),  ORAL
     Route: 048
     Dates: start: 20110304, end: 20110307
  5. MOTILIUM (DOMPERIDONE MALEATE) (TABLETS) (DOMPERIDONE MALEATE) [Concomitant]
  6. MARCUMAR (PHENPROCOUMON) (TABLETS) (PHENPROCOUMON) [Concomitant]
  7. STILNOX (ZOLPIDEM) (TABLETS) (ZOLPIDEM) [Concomitant]

REACTIONS (4)
  - HYPONATRAEMIA [None]
  - ANAEMIA [None]
  - HEADACHE [None]
  - HAEMORRHAGE [None]
